FAERS Safety Report 6379446-0 (Version None)
Quarter: 2009Q3

REPORT INFORMATION
  Report Type: 
  Country: None (occurrence: None)
  Receive Date: 20090928
  Receipt Date: 20090916
  Transmission Date: 20100115
  Serious: Yes (Hospitalization, Other)
  Sender: FDA-Public Use
  Company Number: B0556520A

PATIENT
  Sex: Female

DRUGS (4)
  1. PAXIL [Suspect]
     Indication: PANIC DISORDER
     Route: 048
     Dates: start: 20020101
  2. SOLANAX [Concomitant]
     Indication: ANXIETY
     Route: 048
     Dates: start: 20051129
  3. SAWACILLIN [Concomitant]
     Dosage: 250MG PER DAY
     Route: 048
     Dates: start: 20060126, end: 20060126
  4. SAWACILLIN [Concomitant]
     Dosage: 1000MG PER DAY
     Route: 048
     Dates: start: 20060127

REACTIONS (16)
  - ANXIETY [None]
  - CAESAREAN SECTION [None]
  - DELIVERY [None]
  - DRUG EXPOSURE DURING PREGNANCY [None]
  - FATIGUE [None]
  - FOETAL MACROSOMIA [None]
  - HEART SOUNDS ABNORMAL [None]
  - HYPERVENTILATION [None]
  - LABOUR INDUCTION [None]
  - NERVOUSNESS [None]
  - NORMAL LABOUR [None]
  - PROLONGED LABOUR [None]
  - PRURIGO [None]
  - UTERINE HYPOTONUS [None]
  - UTERINE LEIOMYOMA [None]
  - VAGINAL DISCHARGE [None]
